FAERS Safety Report 9915936 (Version 2)
Quarter: 2014Q1

REPORT INFORMATION
  Report Type: Report from Study
  Country: US (occurrence: US)
  Receive Date: 20140221
  Receipt Date: 20140221
  Transmission Date: 20141002
  Serious: Yes (Other)
  Sender: FDA-Public Use
  Company Number: US-ROCHE-1093885

PATIENT
  Age: 54 Year
  Sex: Male
  Weight: 75.82 kg

DRUGS (6)
  1. BEVACIZUMAB [Suspect]
     Indication: NON-SMALL CELL LUNG CANCER
     Route: 042
     Dates: start: 20120524, end: 201211
  2. BEVACIZUMAB [Suspect]
     Route: 042
     Dates: start: 201206
  3. CARBOPLATIN [Suspect]
     Indication: NON-SMALL CELL LUNG CANCER
     Route: 042
     Dates: start: 20120524, end: 20120726
  4. PACLITAXEL [Suspect]
     Indication: NON-SMALL CELL LUNG CANCER
     Route: 042
     Dates: start: 20120524
  5. ALIMTA [Suspect]
     Indication: NON-SMALL CELL LUNG CANCER
     Route: 042
     Dates: start: 20120524, end: 20120726
  6. NEULASTA [Concomitant]
     Indication: INFECTION PROPHYLAXIS
     Route: 058
     Dates: start: 20120525

REACTIONS (18)
  - Eye discharge [Unknown]
  - Epistaxis [Recovered/Resolved]
  - Swelling face [Not Recovered/Not Resolved]
  - Candida infection [Unknown]
  - Lacrimation disorder [Not Recovered/Not Resolved]
  - Mucous membrane disorder [Not Recovered/Not Resolved]
  - Back pain [Not Recovered/Not Resolved]
  - Weight decreased [Not Recovered/Not Resolved]
  - Dysphagia [Not Recovered/Not Resolved]
  - Protein urine present [Not Recovered/Not Resolved]
  - Bone pain [Recovered/Resolved]
  - Dry eye [Unknown]
  - Alopecia [Unknown]
  - Fatigue [Unknown]
  - Nodule [Unknown]
  - Diabetes mellitus inadequate control [Unknown]
  - Visual impairment [Unknown]
  - Drug ineffective [Unknown]
